FAERS Safety Report 13867414 (Version 1)
Quarter: 2017Q3

REPORT INFORMATION
  Report Type: Spontaneous
  Country: US (occurrence: US)
  Receive Date: 20170814
  Receipt Date: 20170814
  Transmission Date: 20171127
  Serious: No
  Sender: FDA-Public Use
  Company Number: US-009507513-1708USA005921

PATIENT
  Sex: Male

DRUGS (2)
  1. CLARITIN [Suspect]
     Active Substance: LORATADINE
  2. CLARINEX [Suspect]
     Active Substance: DESLORATADINE
     Indication: FOOD ALLERGY
     Dosage: 5 MG TABLET TWICE A DAY
     Route: 048

REACTIONS (4)
  - Product availability issue [Unknown]
  - Swollen tongue [Unknown]
  - Drug dose omission [Unknown]
  - Swelling face [Unknown]
